FAERS Safety Report 7881745-8 (Version None)
Quarter: 2011Q4

REPORT INFORMATION
  Report Type: 
  Country: None (occurrence: None)
  Receive Date: 20111101
  Receipt Date: 20110526
  Transmission Date: 20120403
  Serious: No
  Sender: FDA-Public Use
  Company Number: US-AMGEN-USASP2011027585

PATIENT
  Age: 70 Year
  Sex: Female

DRUGS (1)
  1. ENBREL [Suspect]
     Indication: RHEUMATOID ARTHRITIS
     Dosage: 50 MG, QWK
     Dates: start: 20110101

REACTIONS (8)
  - HYPERSENSITIVITY [None]
  - TOOTHACHE [None]
  - HEADACHE [None]
  - PAIN IN JAW [None]
  - NAUSEA [None]
  - EAR DISCOMFORT [None]
  - SINUS CONGESTION [None]
  - PARANASAL SINUS HYPERSECRETION [None]
